FAERS Safety Report 6175016-8 (Version None)
Quarter: 2009Q2

REPORT INFORMATION
  Report Type: 
  Country: None (occurrence: None)
  Receive Date: 20090430
  Receipt Date: 20090422
  Transmission Date: 20091009
  Serious: Yes (Other)
  Sender: FDA-Public Use
  Company Number: PHHY2009CA15395

PATIENT

DRUGS (1)
  1. DIOVAN T30230++HY [Suspect]
     Dosage: 80 MG

REACTIONS (1)
  - DIABETIC NEPHROPATHY [None]
